FAERS Safety Report 5100873-3 (Version None)
Quarter: 2006Q3

REPORT INFORMATION
  Report Type: 
  Country: None (occurrence: None)
  Receive Date: 20060906
  Receipt Date: 20060821
  Transmission Date: 20061208
  Serious: Yes (Hospitalization)
  Sender: FDA-Public Use
  Company Number: 2006101400

PATIENT
  Sex: Male
  Weight: 73.4827 kg

DRUGS (5)
  1. VIAGRA [Suspect]
     Indication: ERECTILE DYSFUNCTION
     Dosage: 50 MG (50 MG,AS NECESSARY),ORAL
     Route: 048
     Dates: end: 20060101
  2. CAVERJECT [Suspect]
     Indication: ERECTILE DYSFUNCTION
     Dosage: 10 MCG (10 MCG, AS NECESSARY)
     Dates: start: 20060101
  3. SPIRONOLACTONE [Concomitant]
  4. ATENOLOL [Concomitant]
  5. DIURETICS [Concomitant]

REACTIONS (5)
  - DRUG INEFFECTIVE [None]
  - HYPERSENSITIVITY [None]
  - INFLUENZA [None]
  - NASOPHARYNGITIS [None]
  - WRONG TECHNIQUE IN DRUG USAGE PROCESS [None]
